FAERS Safety Report 4959149-7 (Version None)
Quarter: 2006Q1

REPORT INFORMATION
  Report Type: 
  Country: None (occurrence: None)
  Receive Date: 20060331
  Receipt Date: 20060320
  Transmission Date: 20060701
  Serious: Yes (Death, Life-Threatening)
  Sender: FDA-Public Use
  Company Number: JP-BRISTOL-MYERS SQUIBB COMPANY-13327846

PATIENT
  Age: 3 Year
  Sex: Male

DRUGS (14)
  1. ENDOXAN [Suspect]
     Indication: CONGENITAL APLASTIC ANAEMIA
     Route: 042
     Dates: start: 20050413, end: 20050413
  2. PREDONINE [Concomitant]
  3. METHYLPREDNISOLONE [Concomitant]
  4. CYCLOSPORINE [Concomitant]
  5. ALKERAN [Concomitant]
     Dates: start: 20050408, end: 20050408
  6. FLUDARA [Concomitant]
     Dates: start: 20050413, end: 20050415
  7. LYMPHOGLOBULINE [Concomitant]
     Dates: start: 20050415, end: 20050418
  8. DENOSINE [Concomitant]
     Dates: start: 20050412, end: 20050419
  9. KYTRIL [Concomitant]
     Dates: start: 20050412, end: 20050418
  10. HEPARIN [Concomitant]
     Dates: start: 20050411
  11. URSOSAN [Concomitant]
     Dates: start: 20050411
  12. BACCIDAL [Concomitant]
     Dates: start: 20050411
  13. FUNGIZONE [Concomitant]
     Dates: start: 20050411
  14. ACYCLOVIR [Concomitant]
     Dates: start: 20050411

REACTIONS (4)
  - ENTEROCOLITIS [None]
  - GRAFT VERSUS HOST DISEASE [None]
  - PNEUMONIA [None]
  - SEPSIS [None]
